FAERS Safety Report 7424969-6 (Version None)
Quarter: 2011Q2

REPORT INFORMATION
  Report Type: 
  Country: None (occurrence: None)
  Receive Date: 20110419
  Receipt Date: 20110325
  Transmission Date: 20111010
  Serious: Yes (Hospitalization, Other)
  Sender: FDA-Public Use
  Company Number: US-BAYER-201038589NA

PATIENT
  Age: 23 Year
  Sex: Female
  Weight: 104.31 kg

DRUGS (5)
  1. YAZ [Suspect]
     Indication: PRODUCT USED FOR UNKNOWN INDICATION
     Dates: start: 20071201
  2. DROSPIRENONE AND ETHINYL ESTRADIOL [Suspect]
     Indication: PRODUCT USED FOR UNKNOWN INDICATION
     Dates: start: 20071201
  3. YASMIN [Suspect]
     Indication: PRODUCT USED FOR UNKNOWN INDICATION
     Route: 048
     Dates: start: 20071201
  4. MOTRIN [Concomitant]
     Dosage: UNK UNK, PRN
  5. ADVIL LIQUI-GELS [Concomitant]
     Dosage: UNK UNK, PRN

REACTIONS (1)
  - PULMONARY EMBOLISM [None]
